FAERS Safety Report 5179420-6 (Version None)
Quarter: 2006Q4

REPORT INFORMATION
  Report Type: 
  Country: None (occurrence: None)
  Receive Date: 20061219
  Receipt Date: 20061212
  Transmission Date: 20070319
  Serious: Yes (Hospitalization)
  Sender: FDA-Public Use
  Company Number: FR-ROCHE-474968

PATIENT
  Sex: Male

DRUGS (2)
  1. GANCICLOVIR SODIUM [Suspect]
     Indication: GLIOMA
     Dosage: FORM = INJECTION
     Route: 042
     Dates: start: 20061112, end: 20061124
  2. CEREPRO [Suspect]
     Indication: GLIOMA
     Dosage: FORM = INJECTION
     Route: 042
     Dates: start: 20061106, end: 20061106

REACTIONS (8)
  - CONFUSION POSTOPERATIVE [None]
  - CONSTIPATION [None]
  - ESCHERICHIA INFECTION [None]
  - HYPOXIA [None]
  - NERVOUS SYSTEM DISORDER [None]
  - PERFORMANCE STATUS DECREASED [None]
  - SEPSIS [None]
  - VOMITING [None]
